FAERS Safety Report 7555317-9 (Version None)
Quarter: 2011Q2

REPORT INFORMATION
  Report Type: 
  Country: None (occurrence: None)
  Receive Date: 20110617
  Receipt Date: 20110606
  Transmission Date: 20111010
  Serious: Yes (Other)
  Sender: FDA-Public Use
  Company Number: PHHY2011US49365

PATIENT
  Sex: Female
  Weight: 31 kg

DRUGS (1)
  1. EXJADE [Suspect]
     Indication: ANAEMIA
     Dosage: 500 MG, QD
     Route: 048
     Dates: start: 20061110

REACTIONS (2)
  - TONSILLAR HYPERTROPHY [None]
  - SLEEP APNOEA SYNDROME [None]
